FAERS Safety Report 7202572-0 (Version None)
Quarter: 2010Q4

REPORT INFORMATION
  Report Type: 
  Country: None (occurrence: None)
  Receive Date: 20101229
  Receipt Date: 20101222
  Transmission Date: 20110411
  Serious: Yes (Disabling)
  Sender: FDA-Public Use
  Company Number: CA-MERCK-1012USA03647

PATIENT
  Age: 82 Year
  Sex: Female
  Weight: 85 kg

DRUGS (12)
  1. FOSAMAX [Suspect]
     Route: 048
  2. DIDROCAL [Suspect]
     Dosage: DOSAGE FORM: KIT
     Route: 048
  3. ACTOS [Concomitant]
     Route: 065
  4. ADALAT CC [Concomitant]
     Route: 065
  5. AVAPRO [Concomitant]
     Route: 065
  6. DETROL LA [Concomitant]
     Route: 065
  7. EZETROL [Concomitant]
     Route: 065
  8. GLYBURIDE [Concomitant]
     Route: 065
  9. METHYLDOPA [Concomitant]
     Route: 065
  10. PARIET [Concomitant]
     Route: 065
  11. VITAMIN D (UNSPECIFIED) [Concomitant]
     Route: 065
  12. ZOLOFT [Concomitant]
     Route: 065

REACTIONS (5)
  - CONDITION AGGRAVATED [None]
  - FIBULA FRACTURE [None]
  - PAIN [None]
  - PATHOLOGICAL FRACTURE [None]
  - STRESS FRACTURE [None]
